FAERS Safety Report 4463809-4 (Version None)
Quarter: 2004Q3

REPORT INFORMATION
  Report Type: 
  Country: None (occurrence: None)
  Receive Date: 20040929
  Receipt Date: 20040916
  Transmission Date: 20050211
  Serious: Yes (Hospitalization)
  Sender: FDA-Public Use
  Company Number: 2004234152SE

PATIENT
  Age: 42 Year
  Sex: Female

DRUGS (2)
  1. ALDACTONE [Suspect]
     Indication: MENOMETRORRHAGIA
     Dosage: 100 MG, DAILY, ORAL
     Route: 048
     Dates: start: 20040527, end: 20040612
  2. ALDACTONE [Suspect]
     Indication: MENOMETRORRHAGIA
     Dosage: 100 MG, DAILY, ORAL
     Route: 048
     Dates: start: 20040201

REACTIONS (4)
  - ANGIONEUROTIC OEDEMA [None]
  - DYSPNOEA [None]
  - PARAESTHESIA [None]
  - PHARYNGEAL OEDEMA [None]
